FAERS Safety Report 10388156 (Version 1)
Quarter: 2014Q3

REPORT INFORMATION
  Report Type: Spontaneous
  Country: CA (occurrence: CA)
  Receive Date: 20140815
  Receipt Date: 20140815
  Transmission Date: 20150326
  Serious: Yes (Other)
  Sender: FDA-Public Use
  Company Number: CA-GLAXOSMITHKLINE-A1084147A

PATIENT
  Sex: Male

DRUGS (1)
  1. AVANDIA [Suspect]
     Active Substance: ROSIGLITAZONE MALEATE
     Indication: PRODUCT USED FOR UNKNOWN INDICATION
     Route: 065
     Dates: start: 2005, end: 2010

REACTIONS (4)
  - Cardiac disorder [Unknown]
  - Coronary artery bypass [Unknown]
  - Transient ischaemic attack [Unknown]
  - Leg amputation [Unknown]

NARRATIVE: CASE EVENT DATE: 2008
